FAERS Safety Report 16524975 (Version 1)
Quarter: 2019Q3

REPORT INFORMATION
  Report Type: Spontaneous
  Country: DE (occurrence: DE)
  Receive Date: 20190703
  Receipt Date: 20190703
  Transmission Date: 20191004
  Serious: Yes (Other)
  Sender: FDA-Public Use
  Company Number: DE-BAYER-2019-120673

PATIENT
  Sex: Female
  Weight: 90 kg

DRUGS (6)
  1. PROHANCE [Suspect]
     Active Substance: GADOTERIDOL
     Dosage: 15 ML, ONCE
     Route: 042
     Dates: start: 20151105, end: 20151105
  2. MAGNEVIST [Suspect]
     Active Substance: GADOPENTETATE DIMEGLUMINE
     Dosage: 17 ML, ONCE
     Route: 042
     Dates: start: 20151022, end: 20151022
  3. MAGNEVIST [Suspect]
     Active Substance: GADOPENTETATE DIMEGLUMINE
     Dosage: 15 ML, ONCE
     Route: 042
     Dates: start: 20151023, end: 20151023
  4. MULTIHANCE [Suspect]
     Active Substance: GADOBENATE DIMEGLUMINE
     Dosage: 8 ML
     Route: 042
     Dates: start: 20150625
  5. MAGNOGRAF [Suspect]
     Active Substance: GADOPENTETATE DIMEGLUMINE
     Dosage: 12 ML, ONCE
     Route: 042
     Dates: start: 20150721, end: 20150721
  6. DOTAREM [Suspect]
     Active Substance: GADOTERATE MEGLUMINE
     Dosage: 12 ML, ONCE
     Route: 042
     Dates: start: 20150720, end: 20150720

REACTIONS (29)
  - Gadolinium deposition disease [None]
  - Anaemia [None]
  - Muscle spasms [None]
  - Disturbance in attention [None]
  - Memory impairment [None]
  - Skin burning sensation [None]
  - Paraesthesia [None]
  - Muscular weakness [None]
  - Headache [None]
  - Multiple sclerosis [None]
  - Nail bed disorder [None]
  - Thermoanaesthesia [None]
  - Arthralgia [None]
  - Cataract [None]
  - Breast cyst [None]
  - Restless legs syndrome [None]
  - Oedema peripheral [None]
  - Muscle twitching [None]
  - Dyspnoea exertional [None]
  - Respiration abnormal [None]
  - Blood heavy metal increased [None]
  - Cognitive disorder [None]
  - Pruritus [None]
  - Burning sensation [None]
  - Feeling hot [None]
  - Nontherapeutic agent urine positive [None]
  - Tremor [None]
  - Alopecia [None]
  - Menorrhagia [None]

NARRATIVE: CASE EVENT DATE: 20150625
